FAERS Safety Report 10919641 (Version 2)
Quarter: 2015Q2

REPORT INFORMATION
  Report Type: Spontaneous
  Country: US (occurrence: US)
  Receive Date: 20150317
  Receipt Date: 20150526
  Transmission Date: 20150821
  Serious: No
  Sender: FDA-Public Use
  Company Number: US-JNJFOC-20141020608

PATIENT

DRUGS (6)
  1. FALDEPRAVIR [Interacting]
     Active Substance: FALDAPREVIR
     Indication: HIV INFECTION
     Dosage: LOADING DOSE (480 MG) ON DAY 9 FOLLOWED BY 240 MG ONCE DAILY THEREAFTER
     Route: 065
  2. DARUNAVIR [Suspect]
     Active Substance: DARUNAVIR
     Indication: HEPATITIS C
     Dosage: DAYS 1-16
     Route: 048
  3. DARUNAVIR [Suspect]
     Active Substance: DARUNAVIR
     Indication: HIV INFECTION
     Dosage: DAYS 1-16
     Route: 048
  4. RITONAVIR. [Suspect]
     Active Substance: RITONAVIR
     Indication: HEPATITIS C
     Dosage: DAYS 1-16
     Route: 065
  5. FALDEPRAVIR [Interacting]
     Active Substance: FALDAPREVIR
     Indication: HEPATITIS C
     Dosage: LOADING DOSE (480 MG) ON DAY 9 FOLLOWED BY 240 MG ONCE DAILY THEREAFTER
     Route: 065
  6. RITONAVIR. [Suspect]
     Active Substance: RITONAVIR
     Indication: HIV INFECTION
     Dosage: DAYS 1-16
     Route: 065

REACTIONS (11)
  - Vomiting [Unknown]
  - Decreased appetite [Unknown]
  - Headache [Unknown]
  - Fatigue [Unknown]
  - Nausea [Unknown]
  - Flatulence [Unknown]
  - Dizziness [Unknown]
  - Abdominal distension [Unknown]
  - Diarrhoea [Unknown]
  - Drug interaction [Unknown]
  - Sleep disorder [Unknown]
